FAERS Safety Report 4835382-X (Version None)
Quarter: 2005Q4

REPORT INFORMATION
  Report Type: 
  Country: None (occurrence: None)
  Receive Date: 20051118
  Receipt Date: 20051107
  Transmission Date: 20060501
  Serious: Yes (Other)
  Sender: FDA-Public Use
  Company Number: HQWYE734417SEP03

PATIENT
  Age: 56 Year
  Sex: Female
  Weight: 83.5 kg

DRUGS (20)
  1. ENBREL [Suspect]
     Indication: RHEUMATOID ARTHRITIS
     Dosage: 50 MG 1X PER 1 WK, SUBCUTANEOUS
     Route: 058
     Dates: start: 20000301
  2. MINOCYCLINE HCL [Suspect]
     Dosage: 100 MG 2X PER 1 DAY
     Dates: start: 20030701
  3. CELEBREX [Concomitant]
  4. CELEBREX [Concomitant]
  5. PREDNISONE [Concomitant]
  6. PREDNISONE [Concomitant]
  7. DIOVAN [Concomitant]
  8. PRILOSEC [Concomitant]
  9. COLESTID [Concomitant]
  10. PREVACID [Concomitant]
  11. CALCIUM GLUCONATE [Concomitant]
  12. VITAMIN D [Concomitant]
  13. MULTIVITAMINS, PLAIN [Concomitant]
  14. L-LYSIN (LYSINE) [Concomitant]
  15. AVALIDE [Concomitant]
  16. HYDROCHLOROTHIAZIDE [Concomitant]
  17. DOXYCYCLINE [Concomitant]
  18. DEPO-MEDROL (METHLPREDNISOLONE ACETATE) [Concomitant]
  19. ESTROGEN NOS [Concomitant]
  20. LIDOCAINE [Concomitant]

REACTIONS (7)
  - ANAEMIA [None]
  - CONDITION AGGRAVATED [None]
  - ERYTHEMA NODOSUM [None]
  - LEUKOCYTOCLASTIC VASCULITIS [None]
  - NEPHROLITHIASIS [None]
  - SKIN HYPERPIGMENTATION [None]
  - WHEEZING [None]
